FAERS Safety Report 24639350 (Version 2)
Quarter: 2025Q3

REPORT INFORMATION
  Report Type: Report from Study
  Country: US (occurrence: US)
  Receive Date: 20241119
  Receipt Date: 20250803
  Transmission Date: 20251021
  Serious: Yes (Other)
  Sender: ALEXION PHARMACEUTICALS
  Company Number: US-AstraZeneca-CH-00746219A

PATIENT
  Sex: Female

DRUGS (7)
  1. CAPIVASERTIB [Suspect]
     Active Substance: CAPIVASERTIB
     Dosage: 2 TABLETS BY MOUTH TWICE DAILY (EVERY 12 HOURS) FOR 4 CONSECUTIVE DAYS, FOLLOWED BY 3 DAYS  OFF. REPEAT WEEKLY
  2. LEVOTHYROXINE [Concomitant]
     Active Substance: LEVOTHYROXINE
     Route: 065
  3. LISINOPRIL [Concomitant]
     Active Substance: LISINOPRIL
     Route: 065
  4. MIRTAZAPINE [Concomitant]
     Active Substance: MIRTAZAPINE
     Route: 065
  5. SENNA [Concomitant]
     Active Substance: SENNOSIDES
     Route: 065
  6. MIRALAX [Concomitant]
     Active Substance: POLYETHYLENE GLYCOL 3350
     Route: 065
  7. MILK OF MAGNESIA [Concomitant]
     Active Substance: MAGNESIUM HYDROXIDE
     Route: 065

REACTIONS (2)
  - Neoplasm malignant [Unknown]
  - Rash [Unknown]
